FAERS Safety Report 12039485 (Version 1)
Quarter: 2016Q1

REPORT INFORMATION
  Report Type: Spontaneous
  Country: US (occurrence: None)
  Receive Date: 20160205
  Receipt Date: 20160205
  Transmission Date: 20160526
  Serious: No
  Sender: FDA-Public Use
  Company Number: None

PATIENT

DRUGS (2)
  1. HYDRALAZINE 25 MG HERITAGE PHARMACEUTICALS [Suspect]
     Active Substance: HYDRALAZINE HYDROCHLORIDE
  2. HYDROXYZINE 25 MG HERITAGE PHARMACEUTICALS [Suspect]
     Active Substance: HYDROXYZINE HYDROCHLORIDE

REACTIONS (2)
  - Product name confusion [None]
  - Product label confusion [None]

NARRATIVE: CASE EVENT DATE: 20160203
